FAERS Safety Report 23428714 (Version 1)
Quarter: 2024Q1

REPORT INFORMATION
  Report Type: Spontaneous
  Country: TR (occurrence: TR)
  Receive Date: 20240122
  Receipt Date: 20240122
  Transmission Date: 20240410
  Serious: Yes (Other)
  Sender: FDA-Public Use
  Company Number: TR-AMGEN-TURSP2024009797

PATIENT

DRUGS (2)
  1. ADALIMUMAB [Suspect]
     Active Substance: ADALIMUMAB\ISOPROPYL ALCOHOL
     Indication: Juvenile idiopathic arthritis
     Dosage: 20 MILLIGRAM, Q2WK
     Route: 058
  2. ADALIMUMAB [Suspect]
     Active Substance: ADALIMUMAB\ISOPROPYL ALCOHOL
     Indication: Uveitis
     Dosage: 40 MILLIGRAM, Q2WK
     Route: 058

REACTIONS (11)
  - Iris adhesions [Unknown]
  - Hypotony of eye [Unknown]
  - Macular oedema [Unknown]
  - Blindness [Unknown]
  - Cataract [Unknown]
  - Uveitis [Unknown]
  - Drug resistance [Unknown]
  - Keratopathy [Unknown]
  - Epiretinal membrane [Unknown]
  - Visual acuity reduced [Unknown]
  - Therapy non-responder [Unknown]
